FAERS Safety Report 23350061 (Version 1)
Quarter: 2023Q4

REPORT INFORMATION
  Report Type: Spontaneous
  Country: US (occurrence: US)
  Receive Date: 20231229
  Receipt Date: 20231229
  Transmission Date: 20240109
  Serious: No
  Sender: FDA-Public Use
  Company Number: US-002147023-NVSC2023US275113

PATIENT
  Sex: Male

DRUGS (1)
  1. LEQVIO [Suspect]
     Active Substance: INCLISIRAN SODIUM
     Indication: Product used for unknown indication
     Dosage: UNK
     Route: 065
     Dates: start: 20230919

REACTIONS (8)
  - Dyspnoea [Unknown]
  - Fatigue [Unknown]
  - Rash [Unknown]
  - Urticaria [Unknown]
  - Pain [Unknown]
  - Cough [Unknown]
  - Hypersensitivity [Unknown]
  - Drug ineffective [Unknown]
